FAERS Safety Report 11227724 (Version 1)
Quarter: 2015Q2

REPORT INFORMATION
  Report Type: Spontaneous
  Country: US (occurrence: None)
  Receive Date: 20150629
  Receipt Date: 20150629
  Transmission Date: 20150821
  Serious: Yes (Death, Hospitalization)
  Sender: FDA-Public Use
  Company Number: None

PATIENT
  Age: 3 Year
  Sex: Male
  Weight: 17.1 kg

DRUGS (5)
  1. VINCRISTINE SULFATE. [Suspect]
     Active Substance: VINCRISTINE SULFATE
     Dates: end: 20150427
  2. CYTARABINE. [Suspect]
     Active Substance: CYTARABINE
     Dates: end: 20150419
  3. METHOTREXATE [Suspect]
     Active Substance: METHOTREXATE
     Dates: end: 20150427
  4. DAUNORUBICIN [Suspect]
     Active Substance: DAUNORUBICIN
     Dates: end: 20150427
  5. ONCASPAR [Suspect]
     Active Substance: PEGASPARGASE
     Dates: end: 20150423

REACTIONS (12)
  - Respiratory distress [None]
  - Hypotension [None]
  - Cough [None]
  - Fatigue [None]
  - Abnormal faeces [None]
  - Pulmonary haemorrhage [None]
  - Lung infiltration [None]
  - Pyrexia [None]
  - Neutropenia [None]
  - Abdominal distension [None]
  - Bradycardia [None]
  - Oxygen saturation decreased [None]

NARRATIVE: CASE EVENT DATE: 20150504
